FAERS Safety Report 4294077-4 (Version None)
Quarter: 2004Q1

REPORT INFORMATION
  Report Type: 
  Country: None (occurrence: None)
  Receive Date: 20040211
  Receipt Date: 20040128
  Transmission Date: 20041129
  Serious: Yes (Death)
  Sender: FDA-Public Use
  Company Number: EWC040137809

PATIENT
  Age: 51 Year
  Sex: Male
  Weight: 63 kg

DRUGS (6)
  1. GEMCITABINE HYDROCHLORIDE-IV (GEMITABINE) [Suspect]
     Indication: NON-SMALL CELL LUNG CANCER
     Dosage: 1250 MG/M2
     Dates: start: 20031117
  2. CISPLATIN [Concomitant]
  3. DEXAMETHASONE [Concomitant]
  4. ZOFRAN [Concomitant]
  5. MANNITOL [Concomitant]
  6. FUROSEMIDE [Concomitant]

REACTIONS (2)
  - CARDIAC FAILURE [None]
  - RESPIRATORY FAILURE [None]
